FAERS Safety Report 7814866-6 (Version None)
Quarter: 2011Q4

REPORT INFORMATION
  Report Type: 
  Country: None (occurrence: None)
  Receive Date: 20111012
  Receipt Date: 20110927
  Transmission Date: 20120403
  Serious: Yes (Other)
  Sender: FDA-Public Use
  Company Number: 2011IP000169

PATIENT
  Age: 59 Year
  Sex: Male

DRUGS (2)
  1. BEPREVE [Suspect]
     Indication: BLEPHARITIS
     Dosage: 1 GTT;BID;OPH
     Route: 047
     Dates: start: 20110925, end: 20110926
  2. OPCON-A [Concomitant]

REACTIONS (5)
  - RASH ERYTHEMATOUS [None]
  - DRUG HYPERSENSITIVITY [None]
  - SWOLLEN TONGUE [None]
  - LIP SWELLING [None]
  - PRURITUS [None]
